FAERS Safety Report 5374591-0 (Version None)
Quarter: 2007Q2

REPORT INFORMATION
  Report Type: 
  Country: None (occurrence: None)
  Receive Date: 20070629
  Receipt Date: 20070626
  Transmission Date: 20071010
  Serious: Yes (Other)
  Sender: FDA-Public Use
  Company Number: SE-JNJFOC-20070606295

PATIENT
  Age: 8 Year
  Sex: Male

DRUGS (5)
  1. CONCERTA [Suspect]
     Route: 048
  2. CONCERTA [Suspect]
     Indication: ATTENTION DEFICIT/HYPERACTIVITY DISORDER
     Route: 048
  3. ZOLOFT [Concomitant]
  4. PROPAVAN [Concomitant]
  5. NITRAZEPAM [Concomitant]

REACTIONS (1)
  - HALLUCINATION [None]
